FAERS Safety Report 20690382 (Version 2)
Quarter: 2022Q2

REPORT INFORMATION
  Report Type: Spontaneous
  Country: IN (occurrence: IN)
  Receive Date: 20220408
  Receipt Date: 20220422
  Transmission Date: 20220720
  Serious: No
  Sender: FDA-Public Use
  Company Number: IN-LUPIN PHARMACEUTICALS INC.-2022-04914

PATIENT
  Age: 19 Year
  Sex: Female

DRUGS (13)
  1. ALBUTEROL SULFATE [Suspect]
     Active Substance: ALBUTEROL SULFATE
     Indication: Cough
     Dosage: UNK
     Route: 065
  2. ALBUTEROL SULFATE [Suspect]
     Active Substance: ALBUTEROL SULFATE
     Indication: Vomiting
  3. ALBUTEROL SULFATE [Suspect]
     Active Substance: ALBUTEROL SULFATE
     Indication: Dyspnoea
  4. FLUTICASONE PROPIONATE\SALMETEROL XINAFOATE [Suspect]
     Active Substance: FLUTICASONE PROPIONATE\SALMETEROL XINAFOATE
     Indication: Cough
     Dosage: UNK, BID
     Route: 065
  5. FLUTICASONE PROPIONATE\SALMETEROL XINAFOATE [Suspect]
     Active Substance: FLUTICASONE PROPIONATE\SALMETEROL XINAFOATE
     Indication: Vomiting
  6. FLUTICASONE PROPIONATE\SALMETEROL XINAFOATE [Suspect]
     Active Substance: FLUTICASONE PROPIONATE\SALMETEROL XINAFOATE
     Indication: Dyspnoea
  7. LEVOCETIRIZINE DIHYDROCHLORIDE\MONTELUKAST SODIUM [Suspect]
     Active Substance: LEVOCETIRIZINE DIHYDROCHLORIDE\MONTELUKAST SODIUM
     Indication: Cough
     Dosage: UNK, QD (10 X 15T)
     Route: 065
  8. LEVOCETIRIZINE DIHYDROCHLORIDE\MONTELUKAST SODIUM [Suspect]
     Active Substance: LEVOCETIRIZINE DIHYDROCHLORIDE\MONTELUKAST SODIUM
     Indication: Vomiting
  9. LEVOCETIRIZINE DIHYDROCHLORIDE\MONTELUKAST SODIUM [Suspect]
     Active Substance: LEVOCETIRIZINE DIHYDROCHLORIDE\MONTELUKAST SODIUM
     Indication: Dyspnoea
  10. Alex [Concomitant]
     Indication: Product used for unknown indication
     Dosage: UNK
     Route: 065
  11. RESIBRON [Concomitant]
     Indication: Product used for unknown indication
     Dosage: UNK
     Route: 065
  12. DIRAB [Concomitant]
     Indication: Product used for unknown indication
     Dosage: UNK
     Route: 065
  13. Fluticone Ft [Concomitant]
     Indication: Product used for unknown indication
     Dosage: UNK
     Route: 065

REACTIONS (11)
  - Malaise [Recovered/Resolved]
  - Feeling hot [Recovered/Resolved]
  - Dyspnoea [Recovered/Resolved]
  - Condition aggravated [Recovered/Resolved]
  - Gait disturbance [Recovered/Resolved]
  - General physical health deterioration [Recovered/Resolved]
  - Heart rate increased [Recovered/Resolved]
  - Skin discolouration [Recovered/Resolved]
  - Acne [Recovered/Resolved]
  - Pigmentation disorder [Recovered/Resolved]
  - Drug ineffective [Recovered/Resolved]
